FAERS Safety Report 19271919 (Version 2)
Quarter: 2024Q1

REPORT INFORMATION
  Report Type: Spontaneous
  Country: US (occurrence: US)
  Receive Date: 20210519
  Receipt Date: 20240201
  Transmission Date: 20240410
  Serious: No
  Sender: FDA-Public Use
  Company Number: US-NOVEN PHARMACEUTICALS, INC.-2021US000099

PATIENT
  Age: 7 Year
  Sex: Female
  Weight: 32.653 kg

DRUGS (1)
  1. DAYTRANA [Suspect]
     Active Substance: METHYLPHENIDATE
     Indication: Attention deficit hyperactivity disorder
     Dosage: 15MG/9 HOURS
     Route: 062
     Dates: start: 20210108

REACTIONS (7)
  - Dry mouth [Unknown]
  - Vision blurred [Recovered/Resolved]
  - Application site erythema [Unknown]
  - Application site pruritus [Unknown]
  - Exposure via direct contact [Recovered/Resolved]
  - Device difficult to use [Not Recovered/Not Resolved]
  - Product storage error [Recovered/Resolved]

NARRATIVE: CASE EVENT DATE: 20210108
